FAERS Safety Report 7178068-1 (Version None)
Quarter: 2010Q4

REPORT INFORMATION
  Report Type: 
  Country: None (occurrence: None)
  Receive Date: 20101220
  Receipt Date: 20101209
  Transmission Date: 20110411
  Serious: Yes (Death, Hospitalization, Congenital Anomaly)
  Sender: FDA-Public Use
  Company Number: A0851835A

PATIENT
  Sex: Male
  Weight: 2.1 kg

DRUGS (5)
  1. PAXIL CR [Suspect]
     Indication: DEPRESSION
     Dosage: 75MG PER DAY
     Dates: start: 20020423, end: 20030520
  2. LEXAPRO [Concomitant]
  3. VITAMIN AND MINERAL PRENATAL SUPPLEMENT W/ FOLIC ACID CAP [Concomitant]
  4. CARAFATE [Concomitant]
  5. DARVOCET [Concomitant]

REACTIONS (18)
  - ACQUIRED DIAPHRAGMATIC EVENTRATION [None]
  - ATRIAL SEPTAL DEFECT [None]
  - CONGENITAL HAND MALFORMATION [None]
  - CONGENITAL PULMONARY HYPERTENSION [None]
  - CYTOGENETIC ABNORMALITY [None]
  - DEATH [None]
  - DRUG EXPOSURE DURING PREGNANCY [None]
  - DYSMORPHISM [None]
  - FOETAL GROWTH RESTRICTION [None]
  - HEART DISEASE CONGENITAL [None]
  - HYPOTENSION [None]
  - JOINT CONTRACTURE [None]
  - MATERNAL DRUGS AFFECTING FOETUS [None]
  - OLIGURIA [None]
  - PATENT DUCTUS ARTERIOSUS [None]
  - PERSISTENT FOETAL CIRCULATION [None]
  - PREMATURE BABY [None]
  - TRISOMY 18 [None]
